FAERS Safety Report 9832211 (Version 1)
Quarter: 2014Q1

REPORT INFORMATION
  Report Type: Spontaneous
  Country: US (occurrence: US)
  Receive Date: 20140121
  Receipt Date: 20140121
  Transmission Date: 20141002
  Serious: Yes (Other)
  Sender: FDA-Public Use
  Company Number: US-PFIZER INC-2014012747

PATIENT
  Age: 54 Year
  Sex: Male
  Weight: 64.4 kg

DRUGS (1)
  1. TORISEL [Suspect]
     Dosage: UNK
     Dates: start: 201303

REACTIONS (2)
  - Thrombosis [Unknown]
  - Neoplasm [Unknown]
